FAERS Safety Report 14604020 (Version 1)
Quarter: 2018Q1

REPORT INFORMATION
  Report Type: Report from Study
  Country: US (occurrence: US)
  Receive Date: 20180306
  Receipt Date: 20180306
  Transmission Date: 20180509
  Serious: Yes (Death, Hospitalization)
  Sender: FDA-Public Use
  Company Number: US-CELGENEUS-USA-20180301165

PATIENT
  Age: 84 Year
  Sex: Female
  Weight: 93.98 kg

DRUGS (2)
  1. AZACITIDINE. [Suspect]
     Active Substance: AZACITIDINE
     Indication: MYELODYSPLASTIC SYNDROME
     Dosage: 75 MILLIGRAM/SQ. METER
     Route: 041
     Dates: start: 20170714, end: 20171110
  2. DECITABINE. [Concomitant]
     Active Substance: DECITABINE
     Indication: PRODUCT USED FOR UNKNOWN INDICATION
     Route: 065

REACTIONS (4)
  - Hypernatraemia [Unknown]
  - Febrile neutropenia [Unknown]
  - Acute respiratory failure [Fatal]
  - Pneumonia [Unknown]

NARRATIVE: CASE EVENT DATE: 20171112
